FAERS Safety Report 9996093 (Version 1)
Quarter: 2014Q1

REPORT INFORMATION
  Report Type: Spontaneous
  Country: US (occurrence: None)
  Receive Date: 20140310
  Receipt Date: 20140310
  Transmission Date: 20141002
  Serious: Yes (Hospitalization)
  Sender: FDA-Public Use
  Company Number: None

PATIENT
  Age: 77 Year
  Sex: Female
  Weight: 90 kg

DRUGS (2)
  1. CARBOPLATIN [Suspect]
     Dosage: AUC6
  2. PACLITAXEL (TAXOL) [Suspect]
     Dosage: 175MG/M2

REACTIONS (3)
  - Urinary tract infection [None]
  - Neutrophil count decreased [None]
  - Pneumonia [None]
